FAERS Safety Report 4406889-4 (Version None)
Quarter: 2004Q3

REPORT INFORMATION
  Report Type: 
  Country: None (occurrence: None)
  Receive Date: 20040715
  Receipt Date: 20040701
  Transmission Date: 20050211
  Serious: Yes (Life-Threatening)
  Sender: FDA-Public Use
  Company Number: 8006475

PATIENT
  Age: 21 Year
  Sex: Male

DRUGS (1)
  1. KEPPRA [Suspect]
     Indication: EPILEPSY
     Dosage: 500 MG 2/D PO
     Dates: start: 20021201

REACTIONS (9)
  - ANXIETY [None]
  - DEPRESSION [None]
  - INTENTIONAL SELF-INJURY [None]
  - MOOD ALTERED [None]
  - NIGHTMARE [None]
  - PSYCHOTIC DISORDER [None]
  - SKIN LACERATION [None]
  - SLEEP DISORDER [None]
  - SUICIDAL IDEATION [None]
